FAERS Safety Report 5086309-X (Version None)
Quarter: 2006Q3

REPORT INFORMATION
  Report Type: 
  Country: None (occurrence: None)
  Receive Date: 20060703
  Receipt Date: 20060313
  Transmission Date: 20061208
  Serious: No
  Sender: FDA-Public Use
  Company Number: 2006S1002181

PATIENT
  Age: 61 Year
  Sex: Female

DRUGS (15)
  1. CLOZAPINE [Suspect]
     Indication: SCHIZOPHRENIA, PARANOID TYPE
     Dosage: 100 MG; QD; ORAL; SEE IMAGE
     Route: 048
  2. PSYLLIUM HYDROPHILIC [Concomitant]
  3. MUCILLOID [Concomitant]
  4. CLARITHROMYCIN [Concomitant]
  5. MACROGOL [Concomitant]
  6. OMEPRAZOLE [Concomitant]
  7. VITAMINS NOS [Concomitant]
  8. DOCUSATE CALCIUM [Concomitant]
  9. RALOXIFENE HCL [Concomitant]
  10. SIMVASTATIN [Concomitant]
  11. LEVOTHYROXINE SODIUM [Concomitant]
  12. ASPIRIN [Concomitant]
  13. QUETIAPINE FUMARATE [Concomitant]
  14. LORAZEPAM [Concomitant]
  15. TEGASEROD [Concomitant]

REACTIONS (1)
  - GRANULOCYTOPENIA [None]
